FAERS Safety Report 15547341 (Version 1)
Quarter: 2018Q4

REPORT INFORMATION
  Report Type: Spontaneous
  Country: US (occurrence: US)
  Receive Date: 20181024
  Receipt Date: 20181024
  Transmission Date: 20190205
  Serious: Yes (Death, Other)
  Sender: FDA-Public Use
  Company Number: US-TEVA-2018-US-966621

PATIENT
  Sex: Male

DRUGS (8)
  1. ALPRAZOLAM. [Suspect]
     Active Substance: ALPRAZOLAM
     Indication: DRUG ABUSE
     Dosage: 2-4MG/DAY
     Route: 048
  2. HYDROXYZINE [Concomitant]
     Active Substance: HYDROXYZINE HYDROCHLORIDE
     Indication: WITHDRAWAL SYNDROME
     Dosage: 50 MILLIGRAM DAILY;
     Route: 065
  3. ONDANSETRON [Suspect]
     Active Substance: ONDANSETRON
     Indication: VOMITING
     Dosage: 4 MILLIGRAM DAILY;
     Route: 030
  4. CHLORDIAZEPOXIDE. [Concomitant]
     Active Substance: CHLORDIAZEPOXIDE
     Indication: DRUG DETOXIFICATION
     Dosage: 200 MILLIGRAM DAILY;
     Route: 065
  5. CHLORDIAZEPOXIDE. [Concomitant]
     Active Substance: CHLORDIAZEPOXIDE
     Dosage: 170 MILLIGRAM DAILY;
     Route: 065
  6. IBUPROFEN. [Concomitant]
     Active Substance: IBUPROFEN
     Indication: WITHDRAWAL SYNDROME
     Route: 065
  7. TRAZODONE [Suspect]
     Active Substance: TRAZODONE HYDROCHLORIDE
     Indication: WITHDRAWAL SYNDROME
     Dosage: 50 MILLIGRAM DAILY;
     Route: 065
  8. METHADONE [Suspect]
     Active Substance: METHADONE HYDROCHLORIDE
     Indication: DRUG DETOXIFICATION
     Dosage: 20MG INITIAL DOSE FOLLOWED BY THREE DOSES OF 10MG ADMINISTERED ORALLY AT 6 TO 8 HOUR INTERVALS
     Route: 048

REACTIONS (23)
  - Hypoglycaemia [Fatal]
  - Cyanosis [Fatal]
  - Arthralgia [Unknown]
  - Diarrhoea [Unknown]
  - Tremor [Unknown]
  - Pulse absent [Fatal]
  - Respiratory failure [Fatal]
  - Decreased appetite [Unknown]
  - Myalgia [Unknown]
  - Insomnia [Unknown]
  - Overdose [Fatal]
  - Nausea [Unknown]
  - Irritability [Unknown]
  - Ventricular tachyarrhythmia [Fatal]
  - Chills [Unknown]
  - Electrocardiogram QT prolonged [Fatal]
  - Withdrawal syndrome [Unknown]
  - Vomiting [Unknown]
  - Anxiety [Unknown]
  - Anosognosia [Unknown]
  - Drug abuse [Unknown]
  - Hyperhidrosis [Unknown]
  - Restlessness [Unknown]
